FAERS Safety Report 20181197 (Version 1)
Quarter: 2021Q4

REPORT INFORMATION
  Report Type: Spontaneous
  Country: US (occurrence: US)
  Receive Date: 20211214
  Receipt Date: 20211214
  Transmission Date: 20220303
  Serious: No
  Sender: FDA-Public Use
  Company Number: US-CELGENE-USA-20211201532

PATIENT
  Sex: Male
  Weight: 54.934 kg

DRUGS (1)
  1. REVLIMID [Suspect]
     Active Substance: LENALIDOMIDE
     Indication: Plasma cell myeloma
     Dosage: .2381 MILLIGRAM
     Route: 048

REACTIONS (1)
  - White blood cell disorder [Not Recovered/Not Resolved]
